FAERS Safety Report 6187729-2 (Version None)
Quarter: 2009Q2

REPORT INFORMATION
  Report Type: 
  Country: None (occurrence: None)
  Receive Date: 20090513
  Receipt Date: 20090430
  Transmission Date: 20091009
  Serious: Yes (Hospitalization)
  Sender: FDA-Public Use
  Company Number: JP-PFIZER INC-2009201696

PATIENT
  Age: 54 Year

DRUGS (5)
  1. SUNITINIB MALATE [Suspect]
     Indication: RENAL CELL CARCINOMA
     Dosage: 50 MG, 1X/DAY
     Route: 048
     Dates: start: 20090302
  2. ASTOMIN [Concomitant]
     Dosage: UNK
     Route: 048
     Dates: start: 20081127
  3. MAGNESIUM OXIDE [Concomitant]
     Dosage: UNK
     Route: 048
     Dates: start: 20090119
  4. MEDICON [Concomitant]
     Dosage: UNK
     Route: 048
     Dates: start: 20090216
  5. ZYPREXA [Concomitant]
     Dosage: UNK
     Route: 048

REACTIONS (1)
  - ANAL ABSCESS [None]
